FAERS Safety Report 11029535 (Version 1)
Quarter: 2015Q2

REPORT INFORMATION
  Report Type: Spontaneous
  Country: US (occurrence: None)
  Receive Date: 20150413
  Receipt Date: 20150413
  Transmission Date: 20150821
  Serious: No
  Sender: FDA-Public Use
  Company Number: 2015-00037

PATIENT
  Age: 64 Year
  Sex: Male
  Weight: 98.88 kg

DRUGS (2)
  1. ZICAM COLD REMEDY LIQUI-LOZ [Suspect]
     Active Substance: ZINC ACETATE\ZINC GLUCONATE
     Indication: NASOPHARYNGITIS
     Dosage: ONE LOZENGE BY MOUTH
     Route: 048
     Dates: start: 20150404
  2. LISINOPRIL. [Concomitant]
     Active Substance: LISINOPRIL

REACTIONS (3)
  - Dysgeusia [None]
  - Feeling abnormal [None]
  - Oral disorder [None]

NARRATIVE: CASE EVENT DATE: 20150404
